FAERS Safety Report 8456851-X (Version None)
Quarter: 2012Q2

REPORT INFORMATION
  Report Type: 
  Country: None (occurrence: None)
  Receive Date: 20120621
  Receipt Date: 20120612
  Transmission Date: 20120825
  Serious: Yes (Hospitalization, Other)
  Sender: FDA-Public Use
  Company Number: -MYLANLABS-2010AC000405

PATIENT
  Sex: Male

DRUGS (1)
  1. DIGOXIN [Suspect]
     Dates: start: 20060301, end: 20080601

REACTIONS (8)
  - HOSPITALISATION [None]
  - INJURY [None]
  - ECONOMIC PROBLEM [None]
  - EMOTIONAL DISTRESS [None]
  - CARDIAC DISORDER [None]
  - PAIN [None]
  - ILL-DEFINED DISORDER [None]
  - ANXIETY [None]
